FAERS Safety Report 6984111-2 (Version None)
Quarter: 2010Q3

REPORT INFORMATION
  Report Type: 
  Country: None (occurrence: None)
  Receive Date: 20100915
  Receipt Date: 20090521
  Transmission Date: 20110219
  Serious: No
  Sender: FDA-Public Use
  Company Number: US-WYE-H09461209

PATIENT
  Age: 54 Year
  Sex: Female
  Weight: 74.46 kg

DRUGS (1)
  1. PRISTIQ [Suspect]
     Dosage: UNKNOWN
     Dates: end: 20090501

REACTIONS (2)
  - BLOOD PRESSURE INCREASED [None]
  - LIVER FUNCTION TEST ABNORMAL [None]
